FAERS Safety Report 16031252 (Version 7)
Quarter: 2019Q2

REPORT INFORMATION
  Report Type: Spontaneous
  Country: US (occurrence: US)
  Receive Date: 20190304
  Receipt Date: 20190620
  Transmission Date: 20190711
  Serious: Yes (Hospitalization, Other)
  Sender: FDA-Public Use
  Company Number: US-PFIZER INC-2019082460

PATIENT
  Age: 57 Year
  Sex: Male

DRUGS (5)
  1. DEPO-MEDROL [Suspect]
     Active Substance: METHYLPREDNISOLONE ACETATE
     Indication: PAIN
     Dosage: 1 ML, UNK
     Route: 008
  2. MOBIC [Concomitant]
     Active Substance: MELOXICAM
     Dosage: UNK
  3. DEPO-MEDROL [Suspect]
     Active Substance: METHYLPREDNISOLONE ACETATE
     Indication: BACK PAIN
     Dosage: 1 ML, SINGLE
     Route: 008
     Dates: start: 20190208, end: 20190208
  4. TRAMADOL. [Concomitant]
     Active Substance: TRAMADOL
     Dosage: UNK
  5. LORTAB [LORATADINE] [Concomitant]
     Active Substance: LORATADINE
     Dosage: UNK

REACTIONS (12)
  - Staphylococcal infection [Recovered/Resolved]
  - Musculoskeletal pain [Unknown]
  - Gastrooesophageal reflux disease [Unknown]
  - Tenderness [Unknown]
  - Back pain [Unknown]
  - Arthritis bacterial [Unknown]
  - Product use in unapproved indication [Unknown]
  - Pain [Recovering/Resolving]
  - Pyrexia [Unknown]
  - Staphylococcal abscess [Unknown]
  - Psoas abscess [Unknown]
  - Urinary tract infection [Unknown]

NARRATIVE: CASE EVENT DATE: 201902
